FAERS Safety Report 5258391-8 (Version None)
Quarter: 2007Q1

REPORT INFORMATION
  Report Type: 
  Country: None (occurrence: None)
  Receive Date: 20070305
  Receipt Date: 20070219
  Transmission Date: 20070707
  Serious: Yes (Other)
  Sender: FDA-Public Use
  Company Number: 2007RR-05871

PATIENT
  Age: 83 Year
  Sex: Female

DRUGS (7)
  1. FUROSEMIDE [Suspect]
     Indication: HYPERTENSION
     Dosage: 80 NMG, ORAL
     Route: 048
     Dates: start: 19820901
  2. AMLODIPINE MALEATE (AMLODIPINE) UNKNOWN [Concomitant]
  3. ASPIRIN [Concomitant]
  4. BEZAFIBRATE [Concomitant]
  5. CALCICHEW [Concomitant]
  6. ISOSORBIDE MONONITRATE (ISOSORBIDE) [Concomitant]
  7. SPIRONOLACTATE [Concomitant]

REACTIONS (6)
  - ABDOMINAL DISTENSION [None]
  - DIZZINESS [None]
  - MALAISE [None]
  - NAUSEA [None]
  - OSTEOPOROSIS [None]
  - RENAL INJURY [None]
